FAERS Safety Report 24943461 (Version 4)
Quarter: 2025Q3

REPORT INFORMATION
  Report Type: Spontaneous
  Country: JP (occurrence: JP)
  Receive Date: 20250207
  Receipt Date: 20250803
  Transmission Date: 20251021
  Serious: Yes (Hospitalization, Other)
  Sender: ALEXION PHARMACEUTICALS
  Company Number: JP-ASTRAZENECA-250010808_012620_P_1

PATIENT
  Age: 8 Decade
  Sex: Female

DRUGS (7)
  1. TRUQAP [Suspect]
     Active Substance: CAPIVASERTIB
     Indication: Breast cancer
     Dosage: 4 CONSECUTIVE DAYS ADMINISTRATION, FOLLOWED BY 3 DAYS OFF
     Dates: start: 202501
  2. TRUQAP [Suspect]
     Active Substance: CAPIVASERTIB
     Dosage: 4 CONSECUTIVE DAYS ADMINISTRATION, FOLLOWED BY 3 DAYS OFF
     Dates: start: 202501, end: 20250203
  3. TRUQAP [Suspect]
     Active Substance: CAPIVASERTIB
     Dosage: 4 CONSECUTIVE DAYS ADMINISTRATION, FOLLOWED BY 3 DAYS OFF
     Dates: start: 20250217
  4. FULVESTRANT [Suspect]
     Active Substance: FULVESTRANT
     Indication: Breast cancer
  5. FULVESTRANT [Suspect]
     Active Substance: FULVESTRANT
  6. LOPEMIN [Concomitant]
     Route: 065
  7. LOPEMIN [Concomitant]
     Route: 065

REACTIONS (5)
  - Seizure [Recovered/Resolved]
  - Hypokalaemia [Not Recovered/Not Resolved]
  - Diarrhoea [Recovered/Resolved]
  - Hyperglycaemia [Recovered/Resolved]
  - Dehydration [Recovered/Resolved]

NARRATIVE: CASE EVENT DATE: 20250201
